FAERS Safety Report 6095366-3 (Version None)
Quarter: 2009Q1

REPORT INFORMATION
  Report Type: 
  Country: None (occurrence: None)
  Receive Date: 20090227
  Receipt Date: 20080317
  Transmission Date: 20090719
  Serious: No
  Sender: FDA-Public Use
  Company Number: A0715810A

PATIENT
  Age: 16 Year
  Sex: Male

DRUGS (3)
  1. LAMICTAL [Suspect]
     Indication: BIPOLAR DISORDER
     Dosage: 250MG TWICE PER DAY
     Route: 048
     Dates: start: 20080201
  2. FISH OIL [Concomitant]
  3. VITAMIN D [Concomitant]

REACTIONS (4)
  - CHILLS [None]
  - LYMPHADENOPATHY [None]
  - PAIN [None]
  - PYREXIA [None]
